FAERS Safety Report 5476912-7 (Version None)
Quarter: 2007Q3

REPORT INFORMATION
  Report Type: 
  Country: None (occurrence: None)
  Receive Date: 20070912
  Receipt Date: 20070730
  Transmission Date: 20080115
  Serious: No
  Sender: FDA-Public Use
  Company Number: 002#2#2007-00127

PATIENT
  Age: 57 Year
  Sex: Male

DRUGS (3)
  1. NEUPRO [Suspect]
     Indication: PARKINSON'S DISEASE
     Dosage: 2MG/24H,1 IN 1 D,TRANSDERMAL
     Route: 062
     Dates: start: 20070720, end: 20070701
  2. NEUPRO [Suspect]
     Indication: PARKINSON'S DISEASE
     Dosage: 2MG/24H,1 IN 1 D,TRANSDERMAL
     Route: 062
     Dates: start: 20070719, end: 20070719
  3. NEUPRO [Suspect]
     Indication: PARKINSON'S DISEASE
     Dosage: 2MG/24H,1 IN 1 D,TRANSDERMAL
     Route: 062
     Dates: start: 20070701

REACTIONS (2)
  - NAUSEA [None]
  - SOMNOLENCE [None]
